FAERS Safety Report 15717104 (Version 3)
Quarter: 2018Q4

REPORT INFORMATION
  Report Type: Spontaneous
  Country: US (occurrence: US)
  Receive Date: 20181213
  Receipt Date: 20181227
  Transmission Date: 20190205
  Serious: No
  Sender: FDA-Public Use
  Company Number: US-PFIZER INC-2018509764

PATIENT
  Age: 64 Year
  Sex: Female

DRUGS (1)
  1. IBRANCE [Suspect]
     Active Substance: PALBOCICLIB
     Dosage: UNK
     Dates: start: 20181203

REACTIONS (9)
  - Pain [Unknown]
  - Pruritus [Unknown]
  - Malaise [Unknown]
  - Rash [Unknown]
  - Fatigue [Unknown]
  - Alopecia [Unknown]
  - Feeling abnormal [Unknown]
  - Chills [Unknown]
  - Dizziness [Unknown]

NARRATIVE: CASE EVENT DATE: 20181208
